FAERS Safety Report 21786110 (Version 1)
Quarter: 2022Q4

REPORT INFORMATION
  Report Type: Report from Study
  Country: PR (occurrence: PR)
  Receive Date: 20221228
  Receipt Date: 20221228
  Transmission Date: 20230113
  Serious: No
  Sender: FDA-Public Use
  Company Number: PR-ABBVIE-4210589

PATIENT
  Sex: Male
  Weight: 85.728 kg

DRUGS (17)
  1. HUMIRA [Suspect]
     Active Substance: ADALIMUMAB
     Indication: Colitis ulcerative
     Route: 058
  2. HUMIRA [Suspect]
     Active Substance: ADALIMUMAB
     Route: 058
     Dates: start: 202112
  3. JARDIANCE [Concomitant]
     Active Substance: EMPAGLIFLOZIN
     Indication: Diabetes mellitus
     Route: 048
     Dates: start: 2019
  4. IMURAN [Concomitant]
     Active Substance: AZATHIOPRINE
     Indication: Colitis ulcerative
     Route: 048
  5. GLIMEPIRIDE [Concomitant]
     Active Substance: GLIMEPIRIDE
     Indication: Diabetes mellitus
     Route: 048
     Dates: start: 2019
  6. Albuterol Sulfate (Proair) [Concomitant]
     Indication: Asthma
     Route: 055
     Dates: start: 2012
  7. PROTONIX [Concomitant]
     Active Substance: PANTOPRAZOLE SODIUM
     Indication: Dyspepsia
     Route: 048
     Dates: start: 2017
  8. AD26.COV2.S [Concomitant]
     Active Substance: AD26.COV2.S
     Indication: COVID-19
     Dosage: 1ST DOSE?FREQUENCY- ONE IN ONCE
     Route: 030
     Dates: start: 2021, end: 2021
  9. SEROQUEL [Concomitant]
     Active Substance: QUETIAPINE FUMARATE
     Indication: Insomnia
     Route: 048
     Dates: start: 2012
  10. CLORAZEPATE DIPOTASSIUM [Concomitant]
     Active Substance: CLORAZEPATE DIPOTASSIUM
     Indication: Anxiety
     Dosage: START DATE TEXT: MORE THAN 10 YEARS
     Route: 048
  11. ROSUVASTATIN [Concomitant]
     Active Substance: ROSUVASTATIN
     Indication: Blood cholesterol
     Route: 048
     Dates: start: 2018
  12. FAMOTIDINE [Concomitant]
     Active Substance: FAMOTIDINE
     Indication: Dyspepsia
     Route: 048
     Dates: start: 2017
  13. LOSARTAN [Concomitant]
     Active Substance: LOSARTAN
     Indication: Hypertension
     Route: 048
     Dates: start: 2017
  14. Sitagliptin/Metformin (Janumet XR) [Concomitant]
     Indication: Diabetes mellitus
     Dosage: 50/1,000MG
     Route: 048
     Dates: start: 2017
  15. SERTRALINE [Concomitant]
     Active Substance: SERTRALINE HYDROCHLORIDE
     Indication: Depression
     Route: 048
     Dates: start: 2012
  16. ALBUTEROL [Concomitant]
     Active Substance: ALBUTEROL
     Indication: Asthma
     Dosage: START DATE TEXT: MORE THAN 20 YEARS
     Route: 055
  17. Budesonide/Formoterol (Symbicort) [Concomitant]
     Indication: Asthma
     Route: 055
     Dates: start: 2012

REACTIONS (1)
  - Dermatitis allergic [Recovering/Resolving]

NARRATIVE: CASE EVENT DATE: 20221001
